FAERS Safety Report 10957105 (Version 2)
Quarter: 2015Q2

REPORT INFORMATION
  Report Type: Spontaneous
  Country: US (occurrence: US)
  Receive Date: 20150326
  Receipt Date: 20150604
  Transmission Date: 20150821
  Serious: No
  Sender: FDA-Public Use
  Company Number: US-PFIZER INC-2015100841

PATIENT
  Age: 16 Year
  Sex: Female
  Weight: 54 kg

DRUGS (5)
  1. ADVIL [Suspect]
     Active Substance: IBUPROFEN
     Indication: MYALGIA
  2. ADVIL [Suspect]
     Active Substance: IBUPROFEN
     Indication: BACK PAIN
  3. ADVIL [Suspect]
     Active Substance: IBUPROFEN
     Indication: NECK PAIN
     Dosage: 200 MG, 1X/DAY
     Route: 048
     Dates: start: 20150317
  4. ADVIL [Suspect]
     Active Substance: IBUPROFEN
     Indication: MUSCLE SPASMS
  5. ADVIL [Suspect]
     Active Substance: IBUPROFEN
     Indication: PAIN

REACTIONS (4)
  - Rash [Recovered/Resolved]
  - Macule [Recovered/Resolved]
  - Hypersensitivity [Recovered/Resolved]
  - Acne [Recovered/Resolved]

NARRATIVE: CASE EVENT DATE: 20150318
